FAERS Safety Report 15036489 (Version 1)
Quarter: 2018Q2

REPORT INFORMATION
  Report Type: Spontaneous
  Country: US (occurrence: US)
  Receive Date: 20180620
  Receipt Date: 20180620
  Transmission Date: 20180711
  Serious: Yes (Other)
  Sender: FDA-Public Use
  Company Number: US-BAYER-2018-114831

PATIENT
  Age: 69 Year
  Sex: Female

DRUGS (4)
  1. VERAPAMIL [Concomitant]
     Active Substance: VERAPAMIL HYDROCHLORIDE
  2. ALEVE [Suspect]
     Active Substance: NAPROXEN SODIUM
  3. ADVAIR HFA [Concomitant]
     Active Substance: FLUTICASONE PROPIONATE\SALMETEROL XINAFOATE
     Indication: ASTHMA
     Dosage: 1 DF, BID
     Dates: end: 20180516
  4. SINGULAIR [Concomitant]
     Active Substance: MONTELUKAST SODIUM

REACTIONS (12)
  - Arthritis [Unknown]
  - Drug dose omission [Unknown]
  - Optic nerve neoplasm [Unknown]
  - Insomnia [Recovering/Resolving]
  - Pulmonary mass [Unknown]
  - Contrast media reaction [Unknown]
  - Pain [Recovering/Resolving]
  - Drug interaction [Unknown]
  - Myalgia [Unknown]
  - Blindness unilateral [Not Recovered/Not Resolved]
  - Back pain [Unknown]
  - Hypoaesthesia [Unknown]

NARRATIVE: CASE EVENT DATE: 201804
